FAERS Safety Report 7535498-3 (Version None)
Quarter: 2011Q2

REPORT INFORMATION
  Report Type: 
  Country: None (occurrence: None)
  Receive Date: 20110601
  Receipt Date: 20110524
  Transmission Date: 20111010
  Serious: Yes (Other)
  Sender: FDA-Public Use
  Company Number: 2011SP024268

PATIENT
  Age: 54 Year
  Sex: Female

DRUGS (2)
  1. HEPARIN SODIUM [Suspect]
     Indication: CARDIOPULMONARY BYPASS
  2. HEPARIN SODIUM [Suspect]
     Indication: ANTICOAGULANT THERAPY

REACTIONS (2)
  - INTRACARDIAC THROMBUS [None]
  - HEPARIN-INDUCED THROMBOCYTOPENIA [None]
